FAERS Safety Report 6642625-9 (Version None)
Quarter: 2010Q1

REPORT INFORMATION
  Report Type: 
  Country: None (occurrence: None)
  Receive Date: 20100319
  Receipt Date: 20100309
  Transmission Date: 20100710
  Serious: Yes (Hospitalization)
  Sender: FDA-Public Use
  Company Number: AU-MERCK-1003USA01434

PATIENT
  Age: 90 Year
  Sex: Female

DRUGS (6)
  1. FOSAMAX [Suspect]
     Indication: BONE DISORDER
     Route: 048
     Dates: end: 20091218
  2. COUMADIN [Suspect]
     Indication: ARRHYTHMIA
     Route: 048
     Dates: end: 20091218
  3. MELOXICAM [Suspect]
     Indication: OSTEOARTHRITIS
     Route: 048
     Dates: end: 20091217
  4. ESCITALOPRAM [Concomitant]
     Indication: DEPRESSION
     Route: 065
  5. FUROSEMIDE [Concomitant]
     Indication: CARDIAC FAILURE CONGESTIVE
     Route: 065
  6. VALPROATE SODIUM [Concomitant]
     Route: 065

REACTIONS (2)
  - HAEMATEMESIS [None]
  - INTERNATIONAL NORMALISED RATIO INCREASED [None]
